FAERS Safety Report 8016999-0 (Version None)
Quarter: 2012Q1

REPORT INFORMATION
  Report Type: 
  Country: None (occurrence: None)
  Receive Date: 20120102
  Receipt Date: 20111228
  Transmission Date: 20120608
  Serious: Yes (Death)
  Sender: FDA-Public Use
  Company Number: PHEH2011US012628

PATIENT
  Sex: Female
  Weight: 137 kg

DRUGS (1)
  1. EXJADE [Suspect]

REACTIONS (3)
  - ACUTE LEUKAEMIA [None]
  - CONCOMITANT DISEASE PROGRESSION [None]
  - MYELODYSPLASTIC SYNDROME [None]
